FAERS Safety Report 11052429 (Version 17)
Quarter: 2017Q2

REPORT INFORMATION
  Report Type: Spontaneous
  Country: US (occurrence: US)
  Receive Date: 20150421
  Receipt Date: 20170524
  Transmission Date: 20170829
  Serious: Yes (Hospitalization, Other)
  Sender: FDA-Public Use
  Company Number: US-PFIZER INC-2015129908

PATIENT
  Age: 72 Year
  Sex: Male
  Weight: 114 kg

DRUGS (1)
  1. LIPITOR [Suspect]
     Active Substance: ATORVASTATIN CALCIUM
     Indication: BLOOD CHOLESTEROL INCREASED
     Dosage: UNK, 1X/DAY
     Dates: start: 2010

REACTIONS (24)
  - Diabetic eye disease [Not Recovered/Not Resolved]
  - Cerebrovascular accident [Unknown]
  - Tooth fracture [Not Recovered/Not Resolved]
  - Pain in extremity [Not Recovered/Not Resolved]
  - Urine analysis abnormal [Recovered/Resolved]
  - Visual impairment [Not Recovered/Not Resolved]
  - Renal disorder [Not Recovered/Not Resolved]
  - Hypoaesthesia [Not Recovered/Not Resolved]
  - Muscular weakness [Not Recovered/Not Resolved]
  - Eye colour change [Unknown]
  - Neuropathy peripheral [Unknown]
  - Condition aggravated [Not Recovered/Not Resolved]
  - Renal failure [Unknown]
  - Impaired driving ability [Not Recovered/Not Resolved]
  - Neuralgia [Unknown]
  - Ocular hyperaemia [Unknown]
  - Dental caries [Not Recovered/Not Resolved]
  - Skin fissures [Unknown]
  - Eye disorder [Not Recovered/Not Resolved]
  - Type 2 diabetes mellitus [Not Recovered/Not Resolved]
  - Abasia [Not Recovered/Not Resolved]
  - Tremor [Unknown]
  - Blindness [Not Recovered/Not Resolved]
  - Decreased appetite [Unknown]

NARRATIVE: CASE EVENT DATE: 2010
